FAERS Safety Report 6814044-3 (Version None)
Quarter: 2010Q3

REPORT INFORMATION
  Report Type: 
  Country: None (occurrence: None)
  Receive Date: 20100702
  Receipt Date: 20100621
  Transmission Date: 20110219
  Serious: Yes (Hospitalization)
  Sender: FDA-Public Use
  Company Number: FR-ABBOTT-10P-056-0653064-00

PATIENT
  Age: 68 Year
  Sex: Male

DRUGS (1)
  1. ENANTONE 11.25 MG [Suspect]
     Indication: PROSTATE CANCER

REACTIONS (1)
  - ANGIOEDEMA [None]
